FAERS Safety Report 5272892-8 (Version None)
Quarter: 2007Q1

REPORT INFORMATION
  Report Type: 
  Country: None (occurrence: None)
  Receive Date: 20070322
  Receipt Date: 20070312
  Transmission Date: 20070707
  Serious: Yes (Disabling)
  Sender: FDA-Public Use
  Company Number: 2007UW04780

PATIENT
  Age: 8 Year
  Sex: Female

DRUGS (6)
  1. SEROQUEL [Suspect]
     Indication: NIGHTMARE
     Route: 048
     Dates: start: 20061001
  2. SEROQUEL [Suspect]
     Route: 048
  3. SEROQUEL [Suspect]
     Route: 048
  4. SEROQUEL [Suspect]
     Route: 048
  5. PAXIL [Concomitant]
     Indication: POST-TRAUMATIC STRESS DISORDER
  6. PROZAC [Concomitant]
     Indication: POST-TRAUMATIC STRESS DISORDER

REACTIONS (3)
  - LETHARGY [None]
  - SOMNOLENCE [None]
  - WEIGHT INCREASED [None]
